FAERS Safety Report 24005888 (Version 1)
Quarter: 2024Q2

REPORT INFORMATION
  Report Type: Spontaneous
  Country: US (occurrence: US)
  Receive Date: 20240624
  Receipt Date: 20240624
  Transmission Date: 20240716
  Serious: No
  Sender: FDA-Public Use
  Company Number: US-SA-SAC20240620001116

PATIENT
  Sex: Male
  Weight: 93.89 kg

DRUGS (8)
  1. DUPIXENT [Suspect]
     Active Substance: DUPILUMAB
     Indication: Dermatitis atopic
     Dosage: 300 MG, QOW
     Route: 058
  2. CLOBETASOL [Concomitant]
     Active Substance: CLOBETASOL
  3. CLONIDINE [Concomitant]
     Active Substance: CLONIDINE
  4. LOPERAMIDE [Concomitant]
     Active Substance: LOPERAMIDE
  5. LINZESS [Concomitant]
     Active Substance: LINACLOTIDE
  6. TRIAMCINOLONE [Concomitant]
     Active Substance: TRIAMCINOLONE
  7. FINASTERIDE [Concomitant]
     Active Substance: FINASTERIDE
  8. OXYCODONE [Concomitant]
     Active Substance: OXYCODONE\OXYCODONE HYDROCHLORIDE

REACTIONS (1)
  - Injection site pain [Not Recovered/Not Resolved]
